FAERS Safety Report 20486690 (Version 3)
Quarter: 2022Q2

REPORT INFORMATION
  Report Type: Report from Study
  Country: IE (occurrence: IE)
  Receive Date: 20220217
  Receipt Date: 20220422
  Transmission Date: 20220721
  Serious: Yes (Other)
  Sender: FDA-Public Use
  Company Number: IE-UCBSA-2022007375

PATIENT
  Age: 27 Year
  Sex: Female
  Weight: 44 kg

DRUGS (1)
  1. CERTOLIZUMAB PEGOL [Suspect]
     Active Substance: CERTOLIZUMAB PEGOL
     Indication: Axial spondyloarthritis
     Dosage: 400 MILLIGRAM, EV 2 WEEKS(QOW)
     Route: 058
     Dates: start: 20211206, end: 20220224

REACTIONS (5)
  - Cellulitis [Recovered/Resolved]
  - Administration site reaction [Not Recovered/Not Resolved]
  - Streptococcal infection [Recovered/Resolved]
  - Injection site urticaria [Not Recovered/Not Resolved]
  - Urinary tract infection [Unknown]

NARRATIVE: CASE EVENT DATE: 20211201
